FAERS Safety Report 11282433 (Version 3)
Quarter: 2015Q3

REPORT INFORMATION
  Report Type: Report from Study
  Country: US (occurrence: US)
  Receive Date: 20150720
  Receipt Date: 20150831
  Transmission Date: 20151125
  Serious: No
  Sender: FDA-Public Use
  Company Number: PHEH2015US009462

PATIENT
  Sex: Male
  Weight: 83.9 kg

DRUGS (1)
  1. GILENYA [Suspect]
     Active Substance: FINGOLIMOD HYDROCHLORIDE
     Indication: MULTIPLE SCLEROSIS
     Dosage: 0.5 MG, QD
     Route: 048
     Dates: start: 20150112

REACTIONS (5)
  - Headache [Unknown]
  - Visual impairment [Not Recovered/Not Resolved]
  - Oropharyngeal pain [Unknown]
  - Musculoskeletal pain [Unknown]
  - Nasopharyngitis [Unknown]
